FAERS Safety Report 7957620-7 (Version None)
Quarter: 2011Q4

REPORT INFORMATION
  Report Type: 
  Country: None (occurrence: None)
  Receive Date: 20111205
  Receipt Date: 20111125
  Transmission Date: 20120403
  Serious: Yes (Other)
  Sender: FDA-Public Use
  Company Number: PHHY2011GR104188

PATIENT
  Age: 75 Year
  Sex: Male

DRUGS (3)
  1. PLAVIX [Concomitant]
     Indication: CARDIAC DISORDER
     Dosage: UNK UKN, UNK
  2. QUINAPRIL [Concomitant]
     Indication: CARDIAC DISORDER
     Dosage: UNK UKN, UNK
  3. EXELON [Suspect]
     Dosage: UNK UKN, UNK
     Route: 062

REACTIONS (2)
  - RASH [None]
  - HYPERSENSITIVITY [None]
